FAERS Safety Report 8026754-3 (Version None)
Quarter: 2012Q1

REPORT INFORMATION
  Report Type: 
  Country: None (occurrence: None)
  Receive Date: 20120106
  Receipt Date: 20111227
  Transmission Date: 20120608
  Serious: No
  Sender: FDA-Public Use
  Company Number: US-BIOGENIDEC-2011BI048849

PATIENT
  Sex: Female

DRUGS (1)
  1. AVONEX [Suspect]
     Indication: MULTIPLE SCLEROSIS
     Route: 030
     Dates: start: 19971101

REACTIONS (8)
  - RELAPSING-REMITTING MULTIPLE SCLEROSIS [None]
  - OPTIC NEURITIS [None]
  - MUSCLE SPASMS [None]
  - PARKINSONIAN GAIT [None]
  - LOSS OF CONTROL OF LEGS [None]
  - MUSCULAR WEAKNESS [None]
  - PYREXIA [None]
  - ARTHRALGIA [None]
